FAERS Safety Report 17904608 (Version 4)
Quarter: 2022Q4

REPORT INFORMATION
  Report Type: Report from Study
  Country: US (occurrence: US)
  Receive Date: 20200617
  Receipt Date: 20221121
  Transmission Date: 20230112
  Serious: Yes (Life-Threatening, Hospitalization, Other)
  Sender: FDA-Public Use
  Company Number: US-NOVIMMUNE S.A.-NOVI-000200

PATIENT
  Age: 0 Year
  Sex: Male
  Weight: 10 kg

DRUGS (7)
  1. EMAPALUMAB [Suspect]
     Active Substance: EMAPALUMAB
     Indication: Familial haemophagocytic lymphohistiocytosis
     Dosage: 3 MG/KG, 3 INFUSIONS ON 21/OCT/2019, 24/OCT/2019, AND 28/OCT/2019
     Dates: start: 20191021, end: 20191028
  2. EMAPALUMAB [Suspect]
     Active Substance: EMAPALUMAB
     Dosage: 6 MG/KG, 2 INFUSIONS ON 31/OCT/2019 AND 04/NOV/2019
     Dates: start: 20191031, end: 20191104
  3. EMAPALUMAB [Suspect]
     Active Substance: EMAPALUMAB
     Dosage: 10 MG/KG, 3 INFUSIONS (ON 07/NOV/2019, 11/NOV/2019 AND 15/NOV/2019)
     Dates: start: 20191107, end: 20191115
  4. DEXAMETHASONE [Concomitant]
     Active Substance: DEXAMETHASONE
     Indication: Product used for unknown indication
     Dates: start: 20191018
  5. FLUCONAZOLE [Concomitant]
     Active Substance: FLUCONAZOLE
     Indication: Product used for unknown indication
     Dates: start: 20191023
  6. VALGANCICLOVIR [Concomitant]
     Active Substance: VALGANCICLOVIR
     Indication: Product used for unknown indication
     Dates: start: 20191025, end: 20191115
  7. FOSCARNET [Concomitant]
     Active Substance: FOSCARNET
     Indication: Product used for unknown indication
     Dates: start: 20191115

REACTIONS (5)
  - Acute respiratory failure [Recovered/Resolved]
  - Pneumatosis intestinalis [Recovered/Resolved]
  - Condition aggravated [Recovered/Resolved]
  - Thrombocytopenia [Recovered/Resolved]
  - Anaemia [Recovered/Resolved]

NARRATIVE: CASE EVENT DATE: 20191111
